FAERS Safety Report 5358432-3 (Version None)
Quarter: 2007Q2

REPORT INFORMATION
  Report Type: 
  Country: None (occurrence: None)
  Receive Date: 20070531
  Receipt Date: 20070309
  Transmission Date: 20071010
  Serious: No
  Sender: FDA-Public Use
  Company Number: 2007MP000128

PATIENT
  Sex: Male

DRUGS (4)
  1. DACOGEN [Suspect]
     Indication: MYELODYSPLASTIC SYNDROME
     Dosage: QD;IV
     Route: 042
     Dates: start: 20070212, end: 20070216
  2. DACOGEN [Suspect]
     Indication: MYELODYSPLASTIC SYNDROME
     Dosage: QD;IV
     Route: 042
     Dates: start: 20070305, end: 20070309
  3. DACOGEN [Suspect]
     Indication: MYELODYSPLASTIC SYNDROME
     Dosage: QD;IV
     Route: 042
     Dates: start: 20070409, end: 20070413
  4. NEUPOGEN [Concomitant]

REACTIONS (4)
  - HAEMOGLOBIN DECREASED [None]
  - OFF LABEL USE [None]
  - PLATELET COUNT DECREASED [None]
  - WHITE BLOOD CELL COUNT DECREASED [None]
